FAERS Safety Report 14659042 (Version 1)
Quarter: 2018Q1

REPORT INFORMATION
  Report Type: Spontaneous
  Country: JP (occurrence: JP)
  Receive Date: 20180320
  Receipt Date: 20180320
  Transmission Date: 20180509
  Serious: Yes (Other)
  Sender: FDA-Public Use
  Company Number: JP-PFIZER INC-2018100211

PATIENT
  Age: 78 Year

DRUGS (6)
  1. BYAKKO-KA-NINJIN-TO [Concomitant]
     Route: 048
  2. MEILAX [Concomitant]
     Active Substance: ETHYL LOFLAZEPATE
     Route: 048
  3. RIZE [Concomitant]
     Active Substance: CLOTIAZEPAM
     Route: 048
  4. EFFEXOR [Suspect]
     Active Substance: VENLAFAXINE HYDROCHLORIDE
     Dosage: UNK
     Route: 048
     Dates: start: 201709
  5. REFLEX [Concomitant]
     Active Substance: MIRTAZAPINE
     Route: 048
  6. LUNESTA [Concomitant]
     Active Substance: ESZOPICLONE
     Route: 048

REACTIONS (2)
  - Hyponatraemia [Unknown]
  - Atonic seizures [Unknown]
